FAERS Safety Report 9148693 (Version 1)
Quarter: 2013Q1

REPORT INFORMATION
  Report Type: Spontaneous
  Country: US (occurrence: US)
  Receive Date: 20130308
  Receipt Date: 20130308
  Transmission Date: 20140127
  Serious: No
  Sender: FDA-Public Use
  Company Number: US-ENDO PHARMACEUTICALS INC.-OPCR20122003

PATIENT
  Age: 58 None
  Sex: Female
  Weight: 74.91 kg

DRUGS (5)
  1. OPANA ER [Suspect]
     Indication: PAIN
     Route: 048
     Dates: start: 20121101, end: 20121130
  2. OPANA ER [Suspect]
     Route: 048
     Dates: start: 20121201, end: 20121230
  3. OXYMORPHONE HYDROCHLORIDE [Suspect]
     Indication: PAIN
     Route: 048
     Dates: start: 20130102
  4. HYDROCODONE/ACETAMINOPHEN 5MG/500MG [Concomitant]
     Indication: BREAKTHROUGH PAIN
     Dosage: 5/500 MG
     Route: 048
  5. OXYCONTIN [Concomitant]
     Indication: PAIN
     Dosage: UNK
     Route: 048
     Dates: end: 2012

REACTIONS (4)
  - Paraesthesia [Not Recovered/Not Resolved]
  - Photopsia [Not Recovered/Not Resolved]
  - Vitreous floaters [Not Recovered/Not Resolved]
  - Drug effect incomplete [Recovered/Resolved]
